FAERS Safety Report 4881527-5 (Version None)
Quarter: 2006Q1

REPORT INFORMATION
  Report Type: 
  Country: None (occurrence: None)
  Receive Date: 20060116
  Receipt Date: 20051216
  Transmission Date: 20060701
  Serious: Yes (Hospitalization)
  Sender: FDA-Public Use
  Company Number: JP-JPN-A20053135

PATIENT
  Age: 2 Year
  Sex: Female
  Weight: 8.9 kg

DRUGS (8)
  1. ALKERAN [Suspect]
     Indication: ALLOGENIC BONE MARROW TRANSPLANTATION THERAPY
     Dosage: 50MG PER DAY
     Route: 042
     Dates: start: 20040210, end: 20040214
  2. FLUDARA [Suspect]
     Indication: ALLOGENIC BONE MARROW TRANSPLANTATION THERAPY
     Dosage: 30MG PER DAY
     Route: 042
     Dates: start: 20040210, end: 20040213
  3. TACROLIMUS HYDRATE [Suspect]
     Indication: IMMUNOSUPPRESSANT DRUG THERAPY
     Route: 065
     Dates: start: 20040217, end: 20040312
  4. NEUTROGIN [Concomitant]
     Dates: start: 20040218, end: 20040307
  5. CARBENIN [Concomitant]
     Route: 042
     Dates: start: 20040213, end: 20040315
  6. DIFLUCAN [Concomitant]
     Route: 042
     Dates: start: 20040213, end: 20040307
  7. VANCOMYCIN [Concomitant]
     Route: 042
     Dates: start: 20040222, end: 20040302
  8. ZOVIRAX [Concomitant]
     Route: 042
     Dates: start: 20040223, end: 20040311

REACTIONS (3)
  - GRAFT VERSUS HOST DISEASE [None]
  - PETECHIAE [None]
  - THROMBOTIC MICROANGIOPATHY [None]
